FAERS Safety Report 17175462 (Version 4)
Quarter: 2020Q3

REPORT INFORMATION
  Report Type: Report from Study
  Country: MY (occurrence: MY)
  Receive Date: 20191219
  Receipt Date: 20200318
  Transmission Date: 20201105
  Serious: Yes (Hospitalization)
  Sender: FDA-Public Use
  Company Number: MY-ALEXION PHARMACEUTICALS INC.-A201919112

PATIENT
  Age: 52 Year
  Sex: Male
  Weight: 52 kg

DRUGS (10)
  1. MULTIVITAMIN                       /00097801/ [Concomitant]
     Active Substance: VITAMINS
     Indication: SUPPLEMENTATION THERAPY
     Dosage: 1 TABLET, QD
     Route: 048
     Dates: start: 20151229
  2. PROMETHAZINE [Concomitant]
     Active Substance: PROMETHAZINE HYDROCHLORIDE
     Indication: PREMEDICATION
     Dosage: 15 ML, SINGLE
     Route: 048
     Dates: start: 20191107, end: 20191107
  3. PARACETAMOL [Concomitant]
     Active Substance: ACETAMINOPHEN
     Dosage: 1 G, SINGLE
     Route: 048
     Dates: start: 20200102, end: 20200102
  4. FOLIC ACID. [Concomitant]
     Active Substance: FOLIC ACID
     Indication: SUPPLEMENTATION THERAPY
     Dosage: 5 MG, QD
     Route: 048
     Dates: start: 20141105
  5. SLOW K [Concomitant]
     Active Substance: POTASSIUM CHLORIDE
     Indication: HYPOKALAEMIA
     Dosage: 1 TABLET, QD
     Route: 048
     Dates: start: 20180426, end: 20191107
  6. PARACETAMOL [Concomitant]
     Active Substance: ACETAMINOPHEN
     Indication: PREMEDICATION
     Dosage: 1 G, SINGLE
     Route: 048
     Dates: start: 20191107, end: 20191107
  7. RAVULIZUMAB. [Suspect]
     Active Substance: RAVULIZUMAB
     Dosage: 3000 MG, UNK
     Route: 042
     Dates: start: 20200102
  8. RAVULIZUMAB. [Suspect]
     Active Substance: RAVULIZUMAB
     Indication: PAROXYSMAL NOCTURNAL HAEMOGLOBINURIA
     Dosage: 3000 MG, UNK
     Route: 042
     Dates: start: 20191107
  9. PENICILLIN V                       /00001801/ [Concomitant]
     Active Substance: PENICILLIN V
     Indication: INFECTION PROPHYLAXIS
     Dosage: 500 MG, BID
     Route: 048
     Dates: start: 20170427
  10. PROMETHAZINE [Concomitant]
     Active Substance: PROMETHAZINE HYDROCHLORIDE
     Dosage: 15 ML, SINGLE
     Route: 048
     Dates: start: 20200102, end: 20200102

REACTIONS (1)
  - Pneumonia [Recovered/Resolved]

NARRATIVE: CASE EVENT DATE: 20191207
